FAERS Safety Report 7682255-3 (Version None)
Quarter: 2011Q3

REPORT INFORMATION
  Report Type: 
  Country: None (occurrence: None)
  Receive Date: 20110815
  Receipt Date: 20110804
  Transmission Date: 20111222
  Serious: Yes (Other)
  Sender: FDA-Public Use
  Company Number: CA-US-EMD SERONO, INC.-230327K09CAN

PATIENT
  Sex: Female

DRUGS (3)
  1. REBIF [Suspect]
     Indication: RELAPSING-REMITTING MULTIPLE SCLEROSIS
     Dates: start: 20050207
  2. AMANTADINE HCL [Concomitant]
  3. THYROID MEDICATION [Concomitant]

REACTIONS (14)
  - VENOUS STENOSIS [None]
  - PERIPHERAL VASCULAR DISORDER [None]
  - TREMOR [None]
  - HYPOAESTHESIA [None]
  - CYSTITIS [None]
  - DIPLOPIA [None]
  - DIZZINESS [None]
  - VENOUS INSUFFICIENCY [None]
  - EYE DISORDER [None]
  - VENOUS OCCLUSION [None]
  - FLUID RETENTION [None]
  - HYPOAESTHESIA ORAL [None]
  - PAIN IN EXTREMITY [None]
  - SKIN DISCOLOURATION [None]
